FAERS Safety Report 9518443 (Version 1)
Quarter: 2013Q1

REPORT INFORMATION
  Report Type: Spontaneous
  Country: US (occurrence: None)
  Receive Date: 20130305
  Receipt Date: 20130305
  Transmission Date: 20140127
  Serious: Yes (Disabling)
  Sender: FDA-Public Use
  Company Number: 163-21880-12121284

PATIENT
  Sex: Female

DRUGS (1)
  1. REVLIMID (LENALIDOMIDE) [Suspect]
     Indication: PLASMA CELL MYELOMA
     Dosage: 5MG QD FOR 1WK: INCREASED TO 2 CAPS QD FOR 1 WEEK: 3 CAPS QD OR 1 WK; HOLD FOR 1 WEK, PO
     Route: 048
     Dates: start: 20121014, end: 20121111

REACTIONS (1)
  - Pain [None]
